FAERS Safety Report 23940400 (Version 1)
Quarter: 2024Q2

REPORT INFORMATION
  Report Type: Spontaneous
  Country: FR (occurrence: FR)
  Receive Date: 20240605
  Receipt Date: 20240605
  Transmission Date: 20240716
  Serious: Yes (Hospitalization)
  Sender: FDA-Public Use
  Company Number: None

PATIENT
  Age: 34 Year
  Sex: Male
  Weight: 73 kg

DRUGS (1)
  1. FINASTERIDE [Suspect]
     Active Substance: FINASTERIDE
     Indication: Product used for unknown indication
     Route: 048
     Dates: start: 202005

REACTIONS (2)
  - Suicide attempt [Recovered/Resolved]
  - Suicidal ideation [Recovering/Resolving]

NARRATIVE: CASE EVENT DATE: 20240501
